FAERS Safety Report 10481201 (Version 1)
Quarter: 2014Q3

REPORT INFORMATION
  Report Type: Spontaneous
  Country: US (occurrence: US)
  Receive Date: 20140929
  Receipt Date: 20140929
  Transmission Date: 20150326
  Serious: No
  Sender: FDA-Public Use
  Company Number: US-009507513-1409USA007846

PATIENT
  Age: 24 Year
  Sex: Female
  Weight: 131.52 kg

DRUGS (1)
  1. NEXPLANON [Suspect]
     Active Substance: ETONOGESTREL
     Indication: CONTRACEPTION
     Dosage: 1 ROD/ THREE YEARS
     Route: 059
     Dates: start: 20140617

REACTIONS (6)
  - Implant site erythema [Recovering/Resolving]
  - Injection site infection [Unknown]
  - Device expulsion [Unknown]
  - Device expulsion [Recovering/Resolving]
  - Impaired healing [Recovering/Resolving]
  - Injection site discharge [Recovering/Resolving]

NARRATIVE: CASE EVENT DATE: 2014
